FAERS Safety Report 23421750 (Version 1)
Quarter: 2024Q1

REPORT INFORMATION
  Report Type: Spontaneous
  Country: US (occurrence: US)
  Receive Date: 20240119
  Receipt Date: 20240119
  Transmission Date: 20240410
  Serious: No
  Sender: FDA-Public Use
  Company Number: US-PFIZER INC-202400010651

PATIENT
  Age: 53 Year
  Sex: Female
  Weight: 48.08 kg

DRUGS (6)
  1. PAXLOVID [Suspect]
     Active Substance: NIRMATRELVIR\RITONAVIR
     Indication: COVID-19 treatment
     Dosage: IT SAYS 150MG TIMES TWO, 100MG; THREE BY MOUTH TWICE A DAY FOR FIVE DAYS
     Dates: start: 20240109
  2. MUCINEX [Concomitant]
     Active Substance: GUAIFENESIN
     Dosage: 600 MG, 2X/DAY
     Dates: start: 20240107
  3. FLONASE SENSIMIST ALLERGY RELIEF [Concomitant]
     Active Substance: FLUTICASONE FUROATE
     Dosage: 27.5MCG PER SPRAY, TWO SPRAYS EACH NIGHT
  4. ADVIL [Concomitant]
     Active Substance: IBUPROFEN
     Dosage: EVERY 6 HOURS
  5. VITAMIN D NOS [Concomitant]
     Active Substance: VITAMIN D NOS
  6. PANTOPRAZOLE [Concomitant]
     Active Substance: PANTOPRAZOLE
     Dosage: UNK

REACTIONS (8)
  - Dizziness [Unknown]
  - Brain fog [Unknown]
  - Dissociation [Unknown]
  - Dysgeusia [Unknown]
  - Vertigo [Unknown]
  - Feeling abnormal [Unknown]
  - Balance disorder [Unknown]
  - Blood pressure increased [Unknown]

NARRATIVE: CASE EVENT DATE: 20240110
